FAERS Safety Report 7794415-1 (Version None)
Quarter: 2011Q4

REPORT INFORMATION
  Report Type: 
  Country: None (occurrence: None)
  Receive Date: 20111004
  Receipt Date: 20111004
  Transmission Date: 20120403
  Serious: Yes (Other)
  Sender: FDA-Public Use
  Company Number: None

PATIENT
  Age: 45 Year
  Sex: Female
  Weight: 65.77 kg

DRUGS (1)
  1. DYSPORT [Suspect]
     Indication: SKIN WRINKLING
     Dosage: 80 UNITS FIRST VISIT

REACTIONS (6)
  - MUSCULOSKELETAL PAIN [None]
  - CHEST DISCOMFORT [None]
  - NECK PAIN [None]
  - HEADACHE [None]
  - RESPIRATORY DISORDER [None]
  - DYSPNOEA [None]
